FAERS Safety Report 19309858 (Version 1)
Quarter: 2021Q2

REPORT INFORMATION
  Report Type: Report from Study
  Country: None (occurrence: US)
  Receive Date: 20210526
  Receipt Date: 20210526
  Transmission Date: 20210717
  Serious: Yes (Other)
  Sender: FDA-Public Use
  Company Number: US-ABBVIE-21K-163-3918845-00

PATIENT
  Sex: Female

DRUGS (3)
  1. HUMIRA [Suspect]
     Active Substance: ADALIMUMAB
     Indication: CROHN^S DISEASE
     Dosage: CITRATE FREE
     Route: 058
  2. HUMIRA [Suspect]
     Active Substance: ADALIMUMAB
     Indication: PSORIATIC ARTHROPATHY
  3. ADVIL [Concomitant]
     Active Substance: IBUPROFEN
     Indication: PRODUCT USED FOR UNKNOWN INDICATION

REACTIONS (10)
  - Gait disturbance [Unknown]
  - Pain [Recovered/Resolved]
  - Gastrointestinal inflammation [Recovered/Resolved]
  - Hypertension [Recovered/Resolved]
  - Arthritis [Unknown]
  - Fatigue [Recovered/Resolved]
  - Gastrointestinal obstruction [Recovered/Resolved]
  - Abdominal pain upper [Unknown]
  - Dizziness [Unknown]
  - Gastrointestinal disorder [Recovered/Resolved]
